FAERS Safety Report 18249529 (Version 2)
Quarter: 2020Q3

REPORT INFORMATION
  Report Type: Spontaneous
  Country: JP (occurrence: JP)
  Receive Date: 20200910
  Receipt Date: 20200911
  Transmission Date: 20201103
  Serious: No
  Sender: FDA-Public Use
  Company Number: NVSJ2020JP007641

PATIENT
  Age: 76 Year
  Sex: Male

DRUGS (4)
  1. BEOVU [Suspect]
     Active Substance: BROLUCIZUMAB-DBLL
     Indication: AGE-RELATED MACULAR DEGENERATION
     Dosage: 0.05 ML
     Route: 031
     Dates: start: 20200610
  2. PA IODO [Concomitant]
     Indication: VITREOUS OPACITIES
     Dosage: UNK
     Route: 047
     Dates: start: 20190410
  3. TRUSOPT [Concomitant]
     Active Substance: DORZOLAMIDE HYDROCHLORIDE
     Indication: GLAUCOMA
     Dosage: UNK
     Route: 047
  4. PRANOPROFEN [Concomitant]
     Active Substance: PRANOPROFEN
     Indication: VITREOUS OPACITIES
     Dosage: UNK
     Route: 047
     Dates: start: 20190410

REACTIONS (1)
  - Vitreous opacities [Recovering/Resolving]

NARRATIVE: CASE EVENT DATE: 20200701
